FAERS Safety Report 8188950-4 (Version None)
Quarter: 2012Q1

REPORT INFORMATION
  Report Type: 
  Country: None (occurrence: None)
  Receive Date: 20120306
  Receipt Date: 20120227
  Transmission Date: 20120608
  Serious: Yes (Death, Life-Threatening, Other)
  Sender: FDA-Public Use
  Company Number: GB-ROXANE LABORATORIES, INC.-2012-RO-00732RO

PATIENT
  Age: 41 Year
  Sex: Male

DRUGS (9)
  1. AZATHIOPRINE [Suspect]
     Indication: CROHN'S DISEASE
  2. METHOTREXATE [Suspect]
     Indication: CROHN'S DISEASE
  3. VITAMIN D [Concomitant]
  4. VITAMIN B-12 [Concomitant]
  5. AZATHIOPRINE [Suspect]
  6. MESALAMINE [Suspect]
  7. CALCIUM CARBONATE [Suspect]
  8. PREDNISOLONE [Suspect]
     Dosage: 15 MG
  9. INFLIXIMAB [Suspect]
     Indication: CROHN'S DISEASE

REACTIONS (6)
  - METASTASES TO LUNG [None]
  - SPINDLE CELL SARCOMA [None]
  - NEUTROPENIC SEPSIS [None]
  - RENAL FAILURE ACUTE [None]
  - DRUG INEFFECTIVE [None]
  - DEATH [None]
